FAERS Safety Report 4970912-9 (Version None)
Quarter: 2006Q2

REPORT INFORMATION
  Report Type: 
  Country: None (occurrence: None)
  Receive Date: 20060411
  Receipt Date: 20060411
  Transmission Date: 20061013
  Serious: Yes (Death)
  Sender: FDA-Public Use
  Company Number: None

PATIENT
  Age: 44 Year
  Sex: Male
  Weight: 117.9352 kg

DRUGS (2)
  1. XYREM [Suspect]
     Indication: INSOMNIA
     Dates: start: 20051015, end: 20051107
  2. EXREM  LIQUID GHB [Concomitant]

REACTIONS (1)
  - DRUG TOXICITY [None]
